FAERS Safety Report 5245254-7 (Version None)
Quarter: 2007Q1

REPORT INFORMATION
  Report Type: 
  Country: None (occurrence: None)
  Receive Date: 20070223
  Receipt Date: 20070213
  Transmission Date: 20070707
  Serious: Yes (Other)
  Sender: FDA-Public Use
  Company Number: US-MERCK-0608USA06914

PATIENT
  Age: 61 Year
  Sex: Female
  Weight: 50 kg

DRUGS (7)
  1. FOSAMAX [Suspect]
     Indication: OSTEOPENIA
     Route: 048
     Dates: start: 20030623, end: 20060801
  2. LIPITOR [Concomitant]
     Route: 065
  3. SYNTHROID [Concomitant]
     Route: 065
  4. CELEXA [Concomitant]
     Route: 065
  5. PREVACID [Concomitant]
     Route: 065
  6. CENTRUM [Concomitant]
     Route: 065
  7. CALTRATE [Concomitant]
     Route: 065

REACTIONS (3)
  - IMPAIRED HEALING [None]
  - ORAL INFECTION [None]
  - ORAL PAIN [None]
